FAERS Safety Report 5805070-1 (Version None)
Quarter: 2008Q3

REPORT INFORMATION
  Report Type: 
  Country: None (occurrence: None)
  Receive Date: 20080709
  Receipt Date: 20080624
  Transmission Date: 20090109
  Serious: Yes (Death, Hospitalization)
  Sender: FDA-Public Use
  Company Number: FR-PFIZER INC-2008055542

PATIENT
  Age: 78 Year
  Sex: Female

DRUGS (7)
  1. FOSPHENYTOIN SODIUM [Suspect]
     Indication: EPILEPSY
     Route: 042
     Dates: start: 20080516, end: 20080516
  2. LEVOTHYROXINE SODIUM [Concomitant]
  3. PHENYTOIN [Concomitant]
  4. LEVETIRACETAM [Concomitant]
  5. ACETAMINOPHEN [Concomitant]
  6. DIHYDROERGOTAMINE MESYLATE [Concomitant]
  7. MACROGOL [Concomitant]

REACTIONS (3)
  - CARDIOGENIC SHOCK [None]
  - DEATH [None]
  - HYPOTENSION [None]
